FAERS Safety Report 10174649 (Version 1)
Quarter: 2014Q2

REPORT INFORMATION
  Report Type: Spontaneous
  Country: US (occurrence: US)
  Receive Date: 20140515
  Receipt Date: 20140515
  Transmission Date: 20141212
  Serious: Yes (Other)
  Sender: FDA-Public Use
  Company Number: US-UCBSA-120607

PATIENT
  Sex: Male

DRUGS (2)
  1. VIMPAT [Suspect]
     Indication: CONVULSION
     Dosage: 100 MG/ 2DAILY
  2. KEPPRA XR [Suspect]
     Indication: CONVULSION
     Dosage: 750 MG/ 4DAILY

REACTIONS (3)
  - Aortic valve incompetence [Not Recovered/Not Resolved]
  - Nerve injury [Not Recovered/Not Resolved]
  - Impaired gastric emptying [Not Recovered/Not Resolved]
